FAERS Safety Report 16353107 (Version 1)
Quarter: 2019Q2

REPORT INFORMATION
  Report Type: Report from Study
  Country: US (occurrence: US)
  Receive Date: 20190524
  Receipt Date: 20190524
  Transmission Date: 20190711
  Serious: Yes (Death)
  Sender: FDA-Public Use
  Company Number: US-TAIHO ONCOLOGY  INC-EU-2019-01690

PATIENT
  Sex: Male
  Weight: 77.45 kg

DRUGS (17)
  1. EMLA [Concomitant]
     Active Substance: LIDOCAINE\PRILOCAINE
     Dosage: NI
  2. POTASSIUM [Concomitant]
     Active Substance: POTASSIUM
     Dosage: NI
  3. PROCHLORPERAZINE. [Concomitant]
     Active Substance: PROCHLORPERAZINE
     Dosage: NI
  4. AMLODIPINE [Concomitant]
     Active Substance: AMLODIPINE BESYLATE
     Dosage: NI
  5. TAMSULOSIN [Concomitant]
     Active Substance: TAMSULOSIN
     Dosage: NI
  6. ESCITALOPRAM [Concomitant]
     Active Substance: ESCITALOPRAM OXALATE
     Dosage: NI
  7. FERROUS SULFATE. [Concomitant]
     Active Substance: FERROUS SULFATE
     Dosage: NI
  8. VITAMIN B12 [Concomitant]
     Active Substance: CYANOCOBALAMIN
     Dosage: NI
  9. LONSURF [Suspect]
     Active Substance: TIPIRACIL HYDROCHLORIDE\TRIFLURIDINE
     Indication: COLON CANCER
     Dosage: CURRENT CYCLE 2
     Route: 048
  10. MICONAZOLE. [Concomitant]
     Active Substance: MICONAZOLE
     Dosage: NI
  11. BENADRYL [Concomitant]
     Active Substance: DIPHENHYDRAMINE HYDROCHLORIDE
     Dosage: NI
  12. ONDANSETRON [Concomitant]
     Active Substance: ONDANSETRON
     Dosage: NI
  13. APAP [Concomitant]
     Active Substance: ACETAMINOPHEN
     Dosage: NI
  14. LORATADINE. [Concomitant]
     Active Substance: LORATADINE
     Dosage: NI
  15. OXYCODONE [Concomitant]
     Active Substance: OXYCODONE
     Dosage: NI
  16. LOPERAMIDE [Concomitant]
     Active Substance: LOPERAMIDE
     Dosage: NI
  17. NASONEX [Concomitant]
     Active Substance: MOMETASONE FUROATE
     Dosage: NI

REACTIONS (2)
  - Death [Fatal]
  - Disease progression [Unknown]
